FAERS Safety Report 4545295-9 (Version None)
Quarter: 2004Q4

REPORT INFORMATION
  Report Type: 
  Country: None (occurrence: None)
  Receive Date: 20041222
  Receipt Date: 20040525
  Transmission Date: 20050328
  Serious: Yes (Hospitalization)
  Sender: FDA-Public Use
  Company Number: USA040568429

PATIENT
  Age: 61 Year
  Sex: Female
  Weight: 108.8633 kg

DRUGS (2)
  1. HUMALOG [Suspect]
     Dates: start: 19990101
  2. HUMULIN 70/30 [Suspect]
     Dosage: 155 U DAY
     Dates: start: 20040301

REACTIONS (3)
  - CARPAL TUNNEL DECOMPRESSION [None]
  - TENDON SHEATH INCISION [None]
  - TRIGGER FINGER [None]
